FAERS Safety Report 8878945 (Version 4)
Quarter: 2014Q3

REPORT INFORMATION
  Report Type: Spontaneous
  Country: US (occurrence: US)
  Receive Date: 20121026
  Receipt Date: 20140815
  Transmission Date: 20150326
  Serious: Yes (Hospitalization, Disabling, Other)
  Sender: FDA-Public Use
  Company Number: US-009507513-1210USA010360

PATIENT
  Sex: Female
  Weight: 104.31 kg

DRUGS (3)
  1. NUVARING [Suspect]
     Active Substance: ETHINYL ESTRADIOL\ETONOGESTREL
     Indication: DYSMENORRHOEA
  2. NUVARING [Suspect]
     Active Substance: ETHINYL ESTRADIOL\ETONOGESTREL
     Indication: UTERINE LEIOMYOMA
  3. NUVARING [Suspect]
     Active Substance: ETHINYL ESTRADIOL\ETONOGESTREL
     Indication: MENORRHAGIA
     Dosage: UNK
     Route: 067
     Dates: start: 201007, end: 20101017

REACTIONS (11)
  - Off label use [Unknown]
  - Sinus arrhythmia [Unknown]
  - Polyuria [Unknown]
  - Skin disorder [Recovered/Resolved]
  - Dizziness [Unknown]
  - Atelectasis [Unknown]
  - Pneumonitis [Unknown]
  - Pulmonary embolism [Unknown]
  - Arthralgia [Unknown]
  - Cardiac disorder [Unknown]
  - Cough [Unknown]

NARRATIVE: CASE EVENT DATE: 201007
